FAERS Safety Report 4869810-0 (Version None)
Quarter: 2005Q4

REPORT INFORMATION
  Report Type: 
  Country: None (occurrence: None)
  Receive Date: 20051223
  Receipt Date: 20051213
  Transmission Date: 20060501
  Serious: Yes (Hospitalization)
  Sender: FDA-Public Use
  Company Number: S05-USA-05218-01

PATIENT
  Age: 16 Year
  Sex: Female

DRUGS (4)
  1. CELEXA [Suspect]
     Indication: DEPRESSION
     Dosage: 40 MG QHS PO
     Route: 048
     Dates: start: 20050601, end: 20051207
  2. ADVIL [Suspect]
     Indication: NASOPHARYNGITIS
     Dates: start: 20051207, end: 20051207
  3. ECHINACEA [Suspect]
     Indication: NASOPHARYNGITIS
     Dates: start: 20051207, end: 20051207
  4. CONCERTA [Concomitant]

REACTIONS (8)
  - ABDOMINAL PAIN UPPER [None]
  - BLOOD PRESSURE INCREASED [None]
  - DRUG INTERACTION [None]
  - GRAND MAL CONVULSION [None]
  - HEART RATE INCREASED [None]
  - MUSCLE TWITCHING [None]
  - NASOPHARYNGITIS [None]
  - RESTLESSNESS [None]
